FAERS Safety Report 25932801 (Version 2)
Quarter: 2025Q4

REPORT INFORMATION
  Report Type: Spontaneous
  Country: EU (occurrence: EU)
  Receive Date: 20251017
  Receipt Date: 20251107
  Transmission Date: 20260117
  Serious: Yes (Other)
  Sender: TEVA
  Company Number: EU-TEVA-VS-3382997

PATIENT
  Age: 65 Year
  Sex: Male

DRUGS (3)
  1. METHOTREXATE [Suspect]
     Active Substance: METHOTREXATE
     Indication: Psoriatic arthropathy
     Route: 065
  2. RIFAMPIN [Concomitant]
     Active Substance: RIFAMPIN
     Indication: Evidence based treatment
     Route: 065
  3. GOLIMUMAB [Suspect]
     Active Substance: GOLIMUMAB
     Indication: Psoriatic arthropathy
     Route: 065

REACTIONS (1)
  - Cutaneous leishmaniasis [Recovering/Resolving]
